FAERS Safety Report 7767327-7 (Version None)
Quarter: 2011Q3

REPORT INFORMATION
  Report Type: 
  Country: None (occurrence: None)
  Receive Date: 20110922
  Receipt Date: 20110721
  Transmission Date: 20111222
  Serious: No
  Sender: FDA-Public Use
  Company Number: US-ASTRAZENECA-2011SE43783

PATIENT
  Age: 52 Year
  Sex: Male
  Weight: 64.9 kg

DRUGS (3)
  1. SEROQUEL XR [Suspect]
     Indication: DEPRESSION
     Route: 048
     Dates: start: 20110301, end: 20110701
  2. BENZTROPINE MESYLATE [Concomitant]
  3. FLUOXETINE [Concomitant]
     Indication: DEPRESSION

REACTIONS (2)
  - DRUG DOSE OMISSION [None]
  - INSOMNIA [None]
